FAERS Safety Report 7529119-3 (Version None)
Quarter: 2011Q2

REPORT INFORMATION
  Report Type: 
  Country: None (occurrence: None)
  Receive Date: 20110607
  Receipt Date: 20041220
  Transmission Date: 20111010
  Serious: Yes (Death, Other)
  Sender: FDA-Public Use
  Company Number: PHHO2004CA13413

PATIENT
  Sex: Male

DRUGS (4)
  1. CLOZARIL [Suspect]
     Indication: AGITATION
     Dosage: 6.25 MG, QHS
     Route: 048
     Dates: start: 20040604
  2. PROZAC [Concomitant]
  3. PLAVIX [Concomitant]
  4. SINEMET [Concomitant]

REACTIONS (2)
  - MYOCARDIAL INFARCTION [None]
  - DEATH [None]
